FAERS Safety Report 4978495-4 (Version None)
Quarter: 2006Q2

REPORT INFORMATION
  Report Type: 
  Country: None (occurrence: None)
  Receive Date: 20060420
  Receipt Date: 20060411
  Transmission Date: 20061013
  Serious: Yes (Hospitalization, Other)
  Sender: FDA-Public Use
  Company Number: AT-ABBOTT-06P-009-0330577-00

PATIENT
  Age: 74 Year
  Sex: Male
  Weight: 91 kg

DRUGS (6)
  1. ZEMPLAR [Suspect]
     Indication: HYPERPARATHYROIDISM SECONDARY
     Route: 042
     Dates: start: 20060126, end: 20060330
  2. ZEMPLAR [Suspect]
     Route: 042
     Dates: start: 20051114, end: 20060125
  3. ZEMPLAR [Suspect]
     Route: 042
     Dates: start: 20060331
  4. ANTIPHOSPHATE [Concomitant]
     Indication: DRUG USE FOR UNKNOWN INDICATION
     Dates: start: 20050926, end: 20051221
  5. ANTIPHOSPHATE [Concomitant]
     Dates: start: 20051221
  6. CALCITRIOL [Concomitant]
     Indication: DRUG USE FOR UNKNOWN INDICATION

REACTIONS (3)
  - INFECTION [None]
  - OSTEOMYELITIS [None]
  - SKIN ULCER [None]
